FAERS Safety Report 6135565-5 (Version None)
Quarter: 2009Q1

REPORT INFORMATION
  Report Type: 
  Country: None (occurrence: None)
  Receive Date: 20090327
  Receipt Date: 20090316
  Transmission Date: 20090719
  Serious: Yes (Other)
  Sender: FDA-Public Use
  Company Number: PHHY2009GB09989

PATIENT
  Sex: Female

DRUGS (1)
  1. CLOZARIL [Suspect]
     Indication: SCHIZOPHRENIA
     Dosage: UNK
     Route: 048
     Dates: start: 20021001, end: 20090313

REACTIONS (3)
  - GANGRENE [None]
  - GASTROINTESTINAL CARCINOMA [None]
  - TREATMENT NONCOMPLIANCE [None]
